FAERS Safety Report 18129061 (Version 1)
Quarter: 2020Q3

REPORT INFORMATION
  Report Type: Spontaneous
  Country: US (occurrence: US)
  Receive Date: 20200806
  Receipt Date: 20200806
  Transmission Date: 20201103
  Serious: No
  Sender: FDA-Public Use
  Company Number: None

PATIENT
  Age: 47 Year
  Sex: Female

DRUGS (1)
  1. PRAZOSIN (PRAZOSIN HCL 1MG CAP) [Suspect]
     Active Substance: PRAZOSIN HYDROCHLORIDE
     Indication: ABNORMAL DREAMS
     Route: 048
     Dates: start: 20200114, end: 20200414

REACTIONS (2)
  - Amenorrhoea [None]
  - Feeling hot [None]

NARRATIVE: CASE EVENT DATE: 20200716
